FAERS Safety Report 7022249-4 (Version None)
Quarter: 2010Q3

REPORT INFORMATION
  Report Type: 
  Country: None (occurrence: None)
  Receive Date: 20100930
  Receipt Date: 20100921
  Transmission Date: 20110219
  Serious: Yes (Hospitalization)
  Sender: FDA-Public Use
  Company Number: IT-ASTRAZENECA-2010SE44642

PATIENT
  Age: 47 Year
  Sex: Male

DRUGS (2)
  1. OMEPRAZEN [Suspect]
     Indication: GASTROOESOPHAGEAL REFLUX DISEASE
     Route: 048
     Dates: start: 20100821, end: 20100831
  2. GAVISCON [Suspect]
     Indication: GASTROOESOPHAGEAL REFLUX DISEASE
     Route: 048
     Dates: start: 20100821, end: 20100831

REACTIONS (3)
  - HEAD DISCOMFORT [None]
  - LIP OEDEMA [None]
  - RASH GENERALISED [None]
